FAERS Safety Report 21057428 (Version 1)
Quarter: 2022Q3

REPORT INFORMATION
  Report Type: Spontaneous
  Country: US (occurrence: None)
  Receive Date: 20220708
  Receipt Date: 20220708
  Transmission Date: 20221026
  Serious: Yes (Life-Threatening)
  Sender: FDA-Public Use
  Company Number: None

PATIENT
  Age: 76 Year
  Sex: Female
  Weight: 43.2 kg

DRUGS (12)
  1. AMLODIPINE BESYLATE [Suspect]
     Active Substance: AMLODIPINE BESYLATE
     Indication: Hypertension
     Dosage: FREQUENCY : DAILY;?
     Route: 048
  2. GABAPENTIN [Concomitant]
     Active Substance: GABAPENTIN
  3. METOPROLOL [Concomitant]
     Active Substance: METOPROLOL
  4. SYNTHROID [Concomitant]
     Active Substance: LEVOTHYROXINE SODIUM
  5. ADVIL [Concomitant]
     Active Substance: IBUPROFEN
  6. VITAMIN A [Concomitant]
     Active Substance: VITAMIN A
  7. THIAMINE HYDROCHLORIDE [Concomitant]
     Active Substance: THIAMINE HYDROCHLORIDE
  8. Vitamin B-2 [Concomitant]
  9. VITAMIN B12 [Concomitant]
     Active Substance: CYANOCOBALAMIN
  10. VITAMIN E [Concomitant]
     Active Substance: .ALPHA.-TOCOPHEROL
  11. DIETARY SUPPLEMENT [Concomitant]
     Active Substance: DIETARY SUPPLEMENT
  12. ZINC [Concomitant]
     Active Substance: ZINC

REACTIONS (4)
  - Pruritus [None]
  - Erythema [None]
  - Swelling face [None]
  - Blood pressure increased [None]

NARRATIVE: CASE EVENT DATE: 20220706
